FAERS Safety Report 14780418 (Version 1)
Quarter: 2018Q2

REPORT INFORMATION
  Report Type: Spontaneous
  Country: DE (occurrence: DE)
  Receive Date: 20180419
  Receipt Date: 20180419
  Transmission Date: 20180711
  Serious: Yes (Hospitalization)
  Sender: FDA-Public Use
  Company Number: DE-PFIZER INC-2018155295

PATIENT
  Age: 51 Year
  Sex: Female
  Weight: 70 kg

DRUGS (2)
  1. TAVOR EXPIDET [Suspect]
     Active Substance: LORAZEPAM
     Dosage: 20 MG, SINGLE DOSE
     Route: 048
     Dates: start: 20180312, end: 20180312
  2. CANDECOR [Suspect]
     Active Substance: CANDESARTAN CILEXETIL
     Dosage: 16 MG, SINGLE DOSE
     Route: 048
     Dates: start: 20180312, end: 20180312

REACTIONS (3)
  - Suicide attempt [Unknown]
  - Alcohol poisoning [Unknown]
  - Intentional overdose [Unknown]

NARRATIVE: CASE EVENT DATE: 20180312
